FAERS Safety Report 9127915 (Version 1)
Quarter: 2013Q1

REPORT INFORMATION
  Report Type: Spontaneous
  Country: US (occurrence: US)
  Receive Date: 20130228
  Receipt Date: 20130228
  Transmission Date: 20140127
  Serious: No
  Sender: FDA-Public Use
  Company Number: US-BRISTOL-MYERS SQUIBB COMPANY-17300880

PATIENT
  Age: 45 Year
  Sex: Female
  Weight: 104.31 kg

DRUGS (1)
  1. KOMBIGLYZE XR [Suspect]
     Dosage: 1DF=5/1000 UNITS NOS
     Dates: start: 2012

REACTIONS (6)
  - Heart rate increased [Unknown]
  - Blood pressure inadequately controlled [Recovered/Resolved]
  - Urticaria [Recovered/Resolved]
  - Blister [Unknown]
  - Headache [Unknown]
  - Glomerular filtration rate decreased [Unknown]
